FAERS Safety Report 5498245-5 (Version None)
Quarter: 2007Q4

REPORT INFORMATION
  Report Type: 
  Country: None (occurrence: None)
  Receive Date: 20071025
  Receipt Date: 20070426
  Transmission Date: 20080405
  Serious: Yes (Other)
  Sender: FDA-Public Use
  Company Number: A0647677A

PATIENT
  Sex: Male

DRUGS (2)
  1. ADVAIR DISKUS 100/50 [Suspect]
     Indication: ASTHMA
     Route: 055
  2. NEBULIZER [Concomitant]

REACTIONS (5)
  - CATARACT [None]
  - DRUG INEFFECTIVE [None]
  - HEADACHE [None]
  - NERVOUSNESS [None]
  - PNEUMONIA [None]
